FAERS Safety Report 25350358 (Version 2)
Quarter: 2025Q2

REPORT INFORMATION
  Report Type: Report from Study
  Country: CA (occurrence: CA)
  Receive Date: 20250523
  Receipt Date: 20250528
  Transmission Date: 20250717
  Serious: Yes (Hospitalization)
  Sender: BEIGENE
  Company Number: CA-BEIGENE-BGN-2025-007921

PATIENT
  Age: 65 Year

DRUGS (2)
  1. BRUKINSA [Suspect]
     Active Substance: ZANUBRUTINIB
     Indication: Hypergammaglobulinaemia benign monoclonal
     Dosage: 320 MILLIGRAM, DAILY
  2. BRUKINSA [Suspect]
     Active Substance: ZANUBRUTINIB
     Dosage: 80 MILLIGRAM,DAILY

REACTIONS (5)
  - Diarrhoea [Unknown]
  - White blood cell count decreased [Unknown]
  - Pneumonia [Unknown]
  - Fall [Unknown]
  - Intentional product use issue [Unknown]
